FAERS Safety Report 25055508 (Version 2)
Quarter: 2025Q1

REPORT INFORMATION
  Report Type: Spontaneous
  Country: FR (occurrence: FR)
  Receive Date: 20250308
  Receipt Date: 20250319
  Transmission Date: 20250408
  Serious: Yes (Hospitalization)
  Sender: TEVA
  Company Number: FR-TEVA-VS-3302966

PATIENT
  Age: 36 Year
  Sex: Female

DRUGS (3)
  1. ACTIQ [Suspect]
     Active Substance: FENTANYL CITRATE
     Indication: Polyarthritis
     Route: 065
  2. ACTIQ [Suspect]
     Active Substance: FENTANYL CITRATE
     Indication: Polyarthritis
     Route: 065
  3. FENTANYL [Concomitant]
     Active Substance: FENTANYL
     Indication: Polyarthritis
     Route: 065

REACTIONS (6)
  - Influenza [Unknown]
  - Incorrect dose administered [Unknown]
  - Device malfunction [Unknown]
  - Pneumonia [Unknown]
  - Somnolence [Unknown]
  - Product use in unapproved indication [Unknown]
